FAERS Safety Report 5195005-X (Version None)
Quarter: 2006Q4

REPORT INFORMATION
  Report Type: 
  Country: None (occurrence: None)
  Receive Date: 20061229
  Receipt Date: 20061220
  Transmission Date: 20070319
  Serious: Yes (Other)
  Sender: FDA-Public Use
  Company Number: JP-MERCK-0612USA03774

PATIENT
  Age: 81 Year
  Sex: Female

DRUGS (9)
  1. STROMECTOL [Suspect]
     Indication: ACARODERMATITIS
     Route: 048
     Dates: start: 20061128, end: 20061128
  2. EURAX [Concomitant]
     Indication: ACARODERMATITIS
     Route: 061
  3. VASOTEC [Concomitant]
     Route: 048
  4. TICLOPIDINE HYDROCHLORIDE [Concomitant]
     Route: 048
  5. OMEPRAZOLE [Concomitant]
     Route: 048
  6. SULPIRIDE [Concomitant]
     Route: 065
  7. TEPRENONE [Concomitant]
     Route: 048
  8. MAGNESIUM OXIDE [Concomitant]
     Route: 048
  9. JUVELA NICOTINATE [Concomitant]
     Route: 048

REACTIONS (1)
  - DEPRESSED LEVEL OF CONSCIOUSNESS [None]
